FAERS Safety Report 10071603 (Version 1)
Quarter: 2014Q2

REPORT INFORMATION
  Report Type: Spontaneous
  Country: IT (occurrence: IT)
  Receive Date: 20140410
  Receipt Date: 20140410
  Transmission Date: 20141212
  Serious: Yes (Other)
  Sender: FDA-Public Use
  Company Number: IT-MYLANLABS-2014S1007608

PATIENT
  Age: 84 Year
  Sex: Female

DRUGS (2)
  1. LORAZEPAM [Suspect]
     Indication: ANXIETY
     Dosage: 7.5 MG TOTAL
     Route: 048
     Dates: start: 20140320, end: 20140320
  2. CITALOPRAM [Suspect]
     Indication: DEPRESSION
     Dosage: 30 GTT TOTAL
     Route: 048
     Dates: start: 20140320, end: 20140320

REACTIONS (3)
  - Confusional state [Recovered/Resolved]
  - Somnolence [Recovered/Resolved]
  - Incorrect dose administered [Recovered/Resolved]
